FAERS Safety Report 8878448 (Version 1)
Quarter: 2012Q4

REPORT INFORMATION
  Report Type: 
  Country: BR (occurrence: BR)
  Receive Date: 20121030
  Receipt Date: 20121030
  Transmission Date: 20130627
  Serious: Yes (Other)
  Sender: FDA-Public Use
  Company Number: BR-JNJFOC-20121013249

PATIENT
  Age: 44 Year
  Sex: Female
  Weight: 93 kg

DRUGS (2)
  1. XARELTO [Suspect]
     Indication: THROMBOSIS PROPHYLAXIS
     Route: 048
     Dates: start: 20120923
  2. XARELTO [Suspect]
     Indication: COAGULATION FACTOR V LEVEL DECREASED
     Route: 048
     Dates: start: 20120923

REACTIONS (3)
  - Vaginal haemorrhage [Not Recovered/Not Resolved]
  - Hypomenorrhoea [Recovered/Resolved]
  - Blood pressure increased [Not Recovered/Not Resolved]
